FAERS Safety Report 17244317 (Version 5)
Quarter: 2021Q2

REPORT INFORMATION
  Report Type: Spontaneous
  Country: US (occurrence: US)
  Receive Date: 20200107
  Receipt Date: 20210506
  Transmission Date: 20210716
  Serious: Yes (Other)
  Sender: FDA-Public Use
  Company Number: US-GILEAD-2019-0444761

PATIENT
  Age: 40 Year
  Sex: Female

DRUGS (72)
  1. DIOVAN [Concomitant]
     Active Substance: VALSARTAN
  2. DORZOLAMIDE [Concomitant]
     Active Substance: DORZOLAMIDE
  3. PREZISTA [Concomitant]
     Active Substance: DARUNAVIR ETHANOLATE
  4. PAROXETINE. [Concomitant]
     Active Substance: PAROXETINE
  5. QUETIAPINE. [Concomitant]
     Active Substance: QUETIAPINE
  6. FLUTICASONE. [Concomitant]
     Active Substance: FLUTICASONE
  7. SENNALAX [SENNA ALEXANDRINA EXTRACT] [Concomitant]
  8. RENAGEL [SEVELAMER CARBONATE] [Concomitant]
  9. TRAVATAN [Concomitant]
     Active Substance: TRAVOPROST
  10. NIFEDIPINE. [Concomitant]
     Active Substance: NIFEDIPINE
  11. MINOXIDIL. [Concomitant]
     Active Substance: MINOXIDIL
  12. CLOTRIMAZOLE. [Concomitant]
     Active Substance: CLOTRIMAZOLE
  13. JANUVIA [Concomitant]
     Active Substance: SITAGLIPTIN PHOSPHATE
  14. TENOFOVIR DISOPROXIL FUMARATE. [Concomitant]
     Active Substance: TENOFOVIR DISOPROXIL FUMARATE
  15. TRUVADA [Suspect]
     Active Substance: EMTRICITABINE\TENOFOVIR DISOPROXIL FUMARATE
     Dosage: UNK
     Route: 065
     Dates: start: 2007, end: 2014
  16. DESCOVY [Concomitant]
     Active Substance: EMTRICITABINE\TENOFOVIR ALAFENAMIDE FUMARATE
  17. RISPERIDONE. [Concomitant]
     Active Substance: RISPERIDONE
  18. BOOST [Concomitant]
     Active Substance: DIETARY SUPPLEMENT
  19. CLOBETASOL [Concomitant]
     Active Substance: CLOBETASOL
  20. CLONIDINE. [Concomitant]
     Active Substance: CLONIDINE
  21. ZOLPIDEM [Concomitant]
     Active Substance: ZOLPIDEM TARTRATE
  22. TIMOLOL. [Concomitant]
     Active Substance: TIMOLOL
  23. CEPHALEXIN AMEL [Concomitant]
     Active Substance: CEPHALEXIN
  24. SEVELAMER CARBONATE. [Concomitant]
     Active Substance: SEVELAMER CARBONATE
  25. SYMTUZA [Concomitant]
     Active Substance: COBICISTAT\DARUNAVIR\EMTRICITABINE\TENOFOVIR ALAFENAMIDE
  26. SULFAMETHOXAZOLE [Concomitant]
     Active Substance: SULFAMETHOXAZOLE
  27. TRUVADA [Suspect]
     Active Substance: EMTRICITABINE\TENOFOVIR DISOPROXIL FUMARATE
     Dosage: UNK
     Route: 048
     Dates: start: 201110, end: 201401
  28. NAMENDA [Concomitant]
     Active Substance: MEMANTINE HYDROCHLORIDE
  29. PREDNISOLONE. [Concomitant]
     Active Substance: PREDNISOLONE
  30. CLONAZEPAM. [Concomitant]
     Active Substance: CLONAZEPAM
  31. LABETALOL [Concomitant]
     Active Substance: LABETALOL\LABETALOL HYDROCHLORIDE
  32. TESTOSTERONE. [Concomitant]
     Active Substance: TESTOSTERONE
  33. LOSARTAN. [Concomitant]
     Active Substance: LOSARTAN
  34. TERBINAFINE. [Concomitant]
     Active Substance: TERBINAFINE
  35. TRUVADA [Suspect]
     Active Substance: EMTRICITABINE\TENOFOVIR DISOPROXIL FUMARATE
     Indication: HIV INFECTION
     Dosage: UNK
     Route: 048
     Dates: start: 2006, end: 2015
  36. HUMALOG [Concomitant]
     Active Substance: INSULIN LISPRO
  37. PLAVIX [Concomitant]
     Active Substance: CLOPIDOGREL BISULFATE
  38. BUPROPION. [Concomitant]
     Active Substance: BUPROPION
  39. MORPHINE SULFATE. [Concomitant]
     Active Substance: MORPHINE SULFATE
  40. IBUPROFEN. [Concomitant]
     Active Substance: IBUPROFEN
  41. HYDRALAZINE [Concomitant]
     Active Substance: HYDRALAZINE HYDROCHLORIDE
  42. DIPHENHIST [Concomitant]
     Active Substance: DIPHENHYDRAMINE HYDROCHLORIDE
  43. DIDANOSINE. [Concomitant]
     Active Substance: DIDANOSINE
  44. EPIVIR [Concomitant]
     Active Substance: LAMIVUDINE
  45. LIPITOR [Concomitant]
     Active Substance: ATORVASTATIN CALCIUM
  46. NORVIR [Concomitant]
     Active Substance: RITONAVIR
  47. AMMONIUM LACTATE. [Concomitant]
     Active Substance: AMMONIUM LACTATE
  48. ALPRAZOLAM. [Concomitant]
     Active Substance: ALPRAZOLAM
  49. NITROGLYCERINE [Concomitant]
     Active Substance: NITROGLYCERIN
  50. DIPHENHYDRAMINE. [Concomitant]
     Active Substance: DIPHENHYDRAMINE
  51. GAVILYTE ? C [Concomitant]
     Active Substance: POLYETHYLENE GLYCOL 3350\POTASSIUM CHLORIDE\SODIUM BICARBONATE\SODIUM CHLORIDE\SODIUM SULFATE
  52. CLOTRIMAZOLE AND BETAMETHASONE [Concomitant]
     Active Substance: BETAMETHASONE\CLOTRIMAZOLE
  53. MEMANTINE. [Concomitant]
     Active Substance: MEMANTINE
  54. PREDNISONE. [Concomitant]
     Active Substance: PREDNISONE
  55. BRIMONIDINE [Concomitant]
     Active Substance: BRIMONIDINE TARTRATE
  56. OXYCODONE [Concomitant]
     Active Substance: OXYCODONE
  57. FAMOTIDINE. [Concomitant]
     Active Substance: FAMOTIDINE
  58. METOPROLOL. [Concomitant]
     Active Substance: METOPROLOL
  59. RENA?VITE [Concomitant]
     Active Substance: ASCORBIC ACID\BIOTIN\CALCIUM PANTOTHENATE\CYANOCOBALAMIN\FOLIC ACID\NIACINAMIDE\PYRIDOXINE HYDROCHLORIDE\RIBOFLAVIN\THIAMINE MONONITRATE
  60. MUPIROCIN. [Concomitant]
     Active Substance: MUPIROCIN
  61. TIVICAY [Concomitant]
     Active Substance: DOLUTEGRAVIR SODIUM
  62. GABAPENTIN. [Concomitant]
     Active Substance: GABAPENTIN
  63. ISENTRESS [Concomitant]
     Active Substance: RALTEGRAVIR POTASSIUM
  64. NOVOLOG [Concomitant]
     Active Substance: INSULIN ASPART
  65. ATROPINE OPHTHALMIC [Concomitant]
  66. APO?OXYCODONE/ACETAMINOPHEN [Concomitant]
     Active Substance: ACETAMINOPHEN\OXYCODONE HYDROCHLORIDE
  67. TRAZODONE [Concomitant]
     Active Substance: TRAZODONE HYDROCHLORIDE
  68. DOCUSATE SODIUM. [Concomitant]
     Active Substance: DOCUSATE SODIUM
  69. RITONAVIR. [Concomitant]
     Active Substance: RITONAVIR
  70. NOVASOURCE 2.0 [Concomitant]
  71. NEOMYCIN / POLY B / DEXAMETHASONE [Concomitant]
     Active Substance: DEXAMETHASONE\NEOMYCIN SULFATE\POLYMYXIN B SULFATE
  72. KETOCONAZOLE. [Concomitant]
     Active Substance: KETOCONAZOLE

REACTIONS (9)
  - Emotional distress [Unknown]
  - Pain [Unknown]
  - Bone density decreased [Unknown]
  - Renal failure [Not Recovered/Not Resolved]
  - End stage renal disease [Not Recovered/Not Resolved]
  - Tooth loss [Recovered/Resolved]
  - Anxiety [Unknown]
  - Anhedonia [Unknown]
  - Economic problem [Unknown]

NARRATIVE: CASE EVENT DATE: 20080813
